FAERS Safety Report 24468030 (Version 1)
Quarter: 2024Q4

REPORT INFORMATION
  Report Type: Spontaneous
  Country: US (occurrence: US)
  Receive Date: 20241018
  Receipt Date: 20241018
  Transmission Date: 20250114
  Serious: No
  Sender: UCB
  Company Number: US-UCBSA-2024033292

PATIENT
  Sex: Male

DRUGS (3)
  1. RYSTIGGO [Suspect]
     Active Substance: ROZANOLIXIZUMAB-NOLI
     Indication: Myasthenia gravis
     Dosage: UNK UNK, WEEKLY (QW) IN SIX WEEK CYCLE
     Route: 058
     Dates: start: 2024
  2. MESTINON [Concomitant]
     Active Substance: PYRIDOSTIGMINE BROMIDE
     Indication: Myasthenia gravis
     Dosage: 3 PILLS IN THE MORNING
  3. PREDNISONE [Concomitant]
     Active Substance: PREDNISONE
     Indication: Myasthenia gravis
     Dosage: 10 MILLIGRAM

REACTIONS (3)
  - Headache [Unknown]
  - Oropharyngeal discomfort [Unknown]
  - Cough [Unknown]

NARRATIVE: CASE EVENT DATE: 20240101
